FAERS Safety Report 14700185 (Version 1)
Quarter: 2018Q1

REPORT INFORMATION
  Report Type: Spontaneous
  Country: US (occurrence: US)
  Receive Date: 20180330
  Receipt Date: 20180330
  Transmission Date: 20180509
  Serious: Yes (Hospitalization, Other)
  Sender: FDA-Public Use
  Company Number: US-GLAXOSMITHKLINE-US2018053430

PATIENT
  Age: 67 Year
  Sex: Female

DRUGS (3)
  1. AMITRIPTYLINE [Interacting]
     Active Substance: AMITRIPTYLINE
     Indication: DEPRESSION
     Dosage: UNK
     Route: 065
  2. BUPROPION. [Suspect]
     Active Substance: BUPROPION
     Indication: DEPRESSION
     Dosage: UNK
     Route: 065
  3. FLECAINIDE [Interacting]
     Active Substance: FLECAINIDE
     Indication: SINUS TACHYCARDIA
     Dosage: UNK
     Route: 065

REACTIONS (3)
  - Arrhythmia [Recovered/Resolved]
  - Drug interaction [Recovered/Resolved]
  - Electrocardiogram QT prolonged [Recovered/Resolved]
